FAERS Safety Report 4934033-3 (Version None)
Quarter: 2006Q1

REPORT INFORMATION
  Report Type: 
  Country: None (occurrence: None)
  Receive Date: 20060303
  Receipt Date: 20060221
  Transmission Date: 20060701
  Serious: Yes (Other)
  Sender: FDA-Public Use
  Company Number: HQWYE923822FEB06

PATIENT
  Age: 54 Year
  Sex: Female

DRUGS (1)
  1. ADVIL [Suspect]
     Dosage: 1 CAPSULE X 1, ORAL
     Route: 048
     Dates: start: 20060214, end: 20060214

REACTIONS (9)
  - DYSPHAGIA [None]
  - DYSPNOEA [None]
  - FOREIGN BODY TRAUMA [None]
  - LARYNGOSPASM [None]
  - OESOPHAGEAL ULCER [None]
  - PAIN [None]
  - PHARYNGOLARYNGEAL PAIN [None]
  - RETCHING [None]
  - THROAT IRRITATION [None]
